FAERS Safety Report 7864232-2 (Version None)
Quarter: 2011Q4

REPORT INFORMATION
  Report Type: 
  Country: None (occurrence: None)
  Receive Date: 20111028
  Receipt Date: 20111025
  Transmission Date: 20120403
  Serious: Yes (Other)
  Sender: FDA-Public Use
  Company Number: US-PFIZER INC-2011260128

PATIENT
  Sex: Female
  Weight: 96.145 kg

DRUGS (1)
  1. PRISTIQ [Suspect]
     Indication: DEPRESSION
     Dosage: 100 MG, 1X/DAY
     Route: 048
     Dates: start: 20110101, end: 20111020

REACTIONS (4)
  - WITHDRAWAL SYNDROME [None]
  - SUICIDAL IDEATION [None]
  - FEELING ABNORMAL [None]
  - NERVOUSNESS [None]
